FAERS Safety Report 9741900 (Version 4)
Quarter: 2014Q2

REPORT INFORMATION
  Report Type: Report from Study
  Country: IT (occurrence: IT)
  Receive Date: 20131210
  Receipt Date: 20140424
  Transmission Date: 20141212
  Serious: Yes (Other)
  Sender: FDA-Public Use
  Company Number: IT-CELGENEUS-083-21880-13115200

PATIENT
  Age: 65 Year
  Sex: Female
  Weight: 64 kg

DRUGS (13)
  1. REVLIMID [Suspect]
     Indication: PLASMA CELL MYELOMA
     Dosage: 25 MILLIGRAM
     Route: 048
     Dates: start: 20120301, end: 20120321
  2. REVLIMID [Suspect]
     Dosage: 25 MILLIGRAM
     Route: 048
     Dates: end: 20130530
  3. DEXAMETHASONE [Suspect]
     Indication: PLASMA CELL MYELOMA
     Dosage: 160 MILLIGRAM
     Route: 065
     Dates: start: 20050401, end: 200507
  4. DEXAMETHASONE [Suspect]
     Dosage: 160 MILLIGRAM
     Route: 048
     Dates: start: 20120301, end: 20120328
  5. DEXAMETHASONE [Suspect]
     Dosage: 80 MILLIGRAM
     Route: 048
     Dates: start: 20120329, end: 20120401
  6. DEXAMETHASONE [Suspect]
     Route: 065
     Dates: end: 20130530
  7. PREDNISONE [Suspect]
     Indication: PLASMA CELL MYELOMA
     Dosage: 200 MILLIGRAM
     Route: 048
     Dates: start: 20121112, end: 20121212
  8. PREDNISONE [Suspect]
     Route: 048
     Dates: start: 20130608, end: 20130620
  9. PREDNISONE [Suspect]
     Dosage: 200 MILLIGRAM
     Route: 048
     Dates: start: 20120301
  10. THALIDOMIDE [Suspect]
     Indication: PLASMA CELL MYELOMA
     Route: 048
     Dates: start: 200504, end: 200507
  11. THALIDOMIDE [Suspect]
     Route: 048
     Dates: start: 201010, end: 201104
  12. ZOLEDRONIC ACID [Concomitant]
     Indication: PROPHYLAXIS
     Dosage: 4 MILLIGRAM
     Route: 041
     Dates: start: 20130129, end: 20130530
  13. ASPIRINE [Concomitant]
     Indication: PROPHYLAXIS
     Dosage: 100 MILLIGRAM
     Route: 048
     Dates: start: 20120229, end: 20130621

REACTIONS (1)
  - Superficial spreading melanoma stage unspecified [Recovering/Resolving]
